FAERS Safety Report 8115206-8 (Version None)
Quarter: 2012Q1

REPORT INFORMATION
  Report Type: 
  Country: None (occurrence: None)
  Receive Date: 20120201
  Receipt Date: 20120123
  Transmission Date: 20120608
  Serious: Yes (Other)
  Sender: FDA-Public Use
  Company Number: 2012MA001190

PATIENT
  Age: 81 Year
  Sex: Female

DRUGS (2)
  1. FEVERALL [Suspect]
     Dosage: 1 G;Q6H;
  2. WARFARIN SODIUM [Suspect]
     Dosage: 4.5 MG;QD;

REACTIONS (5)
  - GASTROINTESTINAL HAEMORRHAGE [None]
  - PYREXIA [None]
  - INTERNATIONAL NORMALISED RATIO INCREASED [None]
  - ENDOCARDITIS [None]
  - DRUG INTERACTION [None]
